FAERS Safety Report 17485228 (Version 2)
Quarter: 2020Q1

REPORT INFORMATION
  Report Type: Spontaneous
  Country: CA (occurrence: CA)
  Receive Date: 20200302
  Receipt Date: 20200312
  Transmission Date: 20200409
  Serious: Yes (Hospitalization)
  Sender: FDA-Public Use
  Company Number: CA-PFIZER INC-2020090464

PATIENT

DRUGS (2)
  1. ROPIVACAINE HYDROCHLORIDE. [Suspect]
     Active Substance: ROPIVACAINE HYDROCHLORIDE
     Indication: LOCAL ANAESTHESIA
     Dosage: UNK 20ML MIXTURE OF EPINEPHRINE [ADRENALINE] AND 0.5% ROPIVACAINE
  2. EPINEPHRINE. [Suspect]
     Active Substance: EPINEPHRINE
     Indication: LOCAL ANAESTHESIA
     Dosage: UNK 20ML MIXTURE OF EPINEPHRINE [ADRENALINE] AND 0.5% ROPIVACAINE

REACTIONS (2)
  - Hypotension [Recovered/Resolved]
  - Harlequin syndrome [Recovered/Resolved]
